FAERS Safety Report 20830553 (Version 1)
Quarter: 2022Q2

REPORT INFORMATION
  Report Type: Spontaneous
  Country: US (occurrence: US)
  Receive Date: 20220514
  Receipt Date: 20220514
  Transmission Date: 20220721
  Serious: Yes (Other)
  Sender: FDA-Public Use
  Company Number: US-AMGEN-USASP2022078438

PATIENT
  Sex: Female

DRUGS (2)
  1. PROLIA [Suspect]
     Active Substance: DENOSUMAB
     Indication: Bone loss
     Dosage: UNK UNK, Q6MO
     Route: 065
  2. FEMARA [Concomitant]
     Active Substance: LETROZOLE

REACTIONS (3)
  - Breast cancer recurrent [Unknown]
  - Dacryocystitis [Unknown]
  - Off label use [Unknown]
